FAERS Safety Report 17064403 (Version 1)
Quarter: 2019Q4

REPORT INFORMATION
  Report Type: Spontaneous
  Country: CZ (occurrence: CZ)
  Receive Date: 20191122
  Receipt Date: 20191122
  Transmission Date: 20200122
  Serious: Yes (Life-Threatening, Hospitalization, Disabling, Other)
  Sender: FDA-Public Use
  Company Number: CZ-PFIZER INC-2019505741

PATIENT
  Age: 73 Year
  Sex: Female
  Weight: 80 kg

DRUGS (12)
  1. BETALOC ZOK [Concomitant]
     Active Substance: METOPROLOL SUCCINATE
     Dosage: 1/2-0-0
  2. AZOPT [Concomitant]
     Active Substance: BRINZOLAMIDE
     Dosage: UNK UNK, BID(ONCE EVERY 12HOURS)
  3. HUMALOG [Concomitant]
     Active Substance: INSULIN LISPRO
     Dosage: 10-10-10
  4. APO-ALLOPURINOL [Concomitant]
     Active Substance: ALLOPURINOL
     Dosage: 100 MG, QD
  5. TEZEO [Concomitant]
     Active Substance: TELMISARTAN
     Dosage: 1-1-0
  6. PRADAXA [Concomitant]
     Active Substance: DABIGATRAN ETEXILATE MESYLATE
     Dosage: 75 MG, BID (ONCE EVERY 12HOURS)
  7. MOMETASON [Concomitant]
     Active Substance: MOMETASONE FUROATE
     Dosage: UNK UNK, BID (ONCE EVERY 12HOURS)
     Route: 045
  8. MONOPOST [Concomitant]
     Active Substance: LATANOPROST
     Dosage: 0-0-1
  9. DOPEGYT [Concomitant]
     Active Substance: METHYLDOPA
     Dosage: 1/2-0-0
  10. XULTOPHY 100/3.6 [Concomitant]
     Active Substance: INSULIN DEGLUDEC\LIRAGLUTIDE
     Dosage: 0-0-0-14 UNITS
     Route: 058
  11. CORDARONE X [Suspect]
     Active Substance: AMIODARONE HYDROCHLORIDE
     Indication: ATRIAL FIBRILLATION
     Dosage: 200 MG, UNK
     Route: 048
     Dates: start: 201812, end: 201910
  12. FURORESE [FUROSEMIDE] [Concomitant]
     Active Substance: FUROSEMIDE
     Dosage: 1-1/2-0

REACTIONS (6)
  - Abdominal discomfort [Unknown]
  - Cardiotoxicity [Unknown]
  - Photophobia [Unknown]
  - Toxicity to various agents [Unknown]
  - Lung disorder [Unknown]
  - Liver injury [Unknown]

NARRATIVE: CASE EVENT DATE: 201910
